FAERS Safety Report 9986251 (Version 1)
Quarter: 2014Q1

REPORT INFORMATION
  Report Type: Report from Study
  Country: US (occurrence: US)
  Receive Date: 20140307
  Receipt Date: 20140307
  Transmission Date: 20141002
  Serious: No
  Sender: FDA-Public Use
  Company Number: US-ABBVIE-13P-163-1086215-00

PATIENT
  Age: 51 Year
  Sex: Female

DRUGS (3)
  1. HUMIRA [Suspect]
     Indication: CROHN^S DISEASE
     Dates: start: 20130321
  2. RISPERDAL [Concomitant]
     Indication: HALLUCINATION, AUDITORY
  3. BUPROPION [Concomitant]
     Indication: DEPRESSION

REACTIONS (1)
  - Injection site haemorrhage [Recovered/Resolved]
